FAERS Safety Report 5823077-5 (Version None)
Quarter: 2008Q3

REPORT INFORMATION
  Report Type: 
  Country: None (occurrence: None)
  Receive Date: 20080725
  Receipt Date: 20070629
  Transmission Date: 20090109
  Serious: No
  Sender: FDA-Public Use
  Company Number: US-AMGEN-KDL232050

PATIENT
  Sex: Female
  Weight: 64.1 kg

DRUGS (9)
  1. PROCRIT [Suspect]
     Indication: PRE-EXISTING DISEASE
     Dates: start: 20070315
  2. PEGASYS [Concomitant]
     Route: 058
     Dates: start: 20070122
  3. RIBAVIRIN [Concomitant]
     Dates: start: 20070122
  4. HYDROCHLOROTHIAZIDE [Concomitant]
  5. ALLEGRA [Concomitant]
  6. COZAAR [Concomitant]
  7. RALOXIFENE HCL [Concomitant]
  8. OMEPRAZOLE [Concomitant]
  9. ATENOLOL [Concomitant]

REACTIONS (13)
  - DECREASED APPETITE [None]
  - DRY SKIN [None]
  - DYSPNOEA EXERTIONAL [None]
  - EPISTAXIS [None]
  - FACIAL BONES FRACTURE [None]
  - FALL [None]
  - FATIGUE [None]
  - MIGRAINE WITH AURA [None]
  - MYALGIA [None]
  - PAIN [None]
  - PRURITUS [None]
  - RASH [None]
  - RASH PRURITIC [None]
